FAERS Safety Report 11388278 (Version 2)
Quarter: 2015Q3

REPORT INFORMATION
  Report Type: Report from Study
  Country: DE (occurrence: DE)
  Receive Date: 20150817
  Receipt Date: 20150915
  Transmission Date: 20151125
  Serious: Yes (Death)
  Sender: FDA-Public Use
  Company Number: GXKR2015DE003739

PATIENT
  Age: 79 Year
  Sex: Male
  Weight: 67 kg

DRUGS (2)
  1. LEUPRONE HEXAL [Suspect]
     Active Substance: LEUPROLIDE ACETATE
     Indication: NEOPLASM PROSTATE
     Dosage: 5 MG, UNK
     Route: 058
     Dates: start: 20140918, end: 20141210
  2. TAMSULOSIN [Concomitant]
     Active Substance: TAMSULOSIN
     Indication: NEOPLASM PROSTATE
     Dosage: 0.4 MG, QD
     Route: 048
     Dates: start: 20140806

REACTIONS (4)
  - Metastatic bronchial carcinoma [Fatal]
  - Decreased appetite [Fatal]
  - Weight decreased [Fatal]
  - Dyspnoea [Fatal]

NARRATIVE: CASE EVENT DATE: 20141014
